FAERS Safety Report 12789147 (Version 2)
Quarter: 2016Q4

REPORT INFORMATION
  Report Type: Spontaneous
  Country: US (occurrence: US)
  Receive Date: 20160928
  Receipt Date: 20161020
  Transmission Date: 20170207
  Serious: No
  Sender: FDA-Public Use
  Company Number: US-PFIZER INC-2016454829

PATIENT
  Age: 78 Year
  Sex: Female
  Weight: 38.56 kg

DRUGS (3)
  1. XELJANZ XR [Suspect]
     Active Substance: TOFACITINIB CITRATE
     Indication: RHEUMATOID ARTHRITIS
     Dosage: 11MG 1 TABLET BY MOUTH ONCE DAILY
     Route: 048
     Dates: start: 201607, end: 201609
  2. METHOTREXATE. [Concomitant]
     Active Substance: METHOTREXATE
     Dosage: UNK
     Dates: start: 2005
  3. XELJANZ XR [Suspect]
     Active Substance: TOFACITINIB CITRATE
     Dosage: 20 MG, UNK
     Dates: start: 20160701, end: 201609

REACTIONS (1)
  - Drug ineffective [Recovered/Resolved]
